FAERS Safety Report 20218912 (Version 1)
Quarter: 2021Q4

REPORT INFORMATION
  Report Type: Spontaneous
  Country: US (occurrence: US)
  Receive Date: 20211222
  Receipt Date: 20211222
  Transmission Date: 20220303
  Serious: No
  Sender: FDA-Public Use
  Company Number: US-BioHaven Pharmaceuticals-2021BHV002856

PATIENT
  Age: 23 Year

DRUGS (1)
  1. NURTEC ODT [Suspect]
     Active Substance: RIMEGEPANT SULFATE
     Indication: Migraine
     Dosage: FILLED ONCE ON 27-AUG WITH PILL PACK (8 TABLETS)
     Route: 065

REACTIONS (2)
  - Abdominal pain upper [Unknown]
  - Nausea [Unknown]
